FAERS Safety Report 4706778-1 (Version None)
Quarter: 2005Q2

REPORT INFORMATION
  Report Type: 
  Country: None (occurrence: None)
  Receive Date: 20050629
  Receipt Date: 20050421
  Transmission Date: 20051028
  Serious: No
  Sender: FDA-Public Use
  Company Number: 05P-163-0298040-00

PATIENT
  Age: 67 Year
  Sex: Female
  Weight: 48.5349 kg

DRUGS (19)
  1. HUMIRA [Suspect]
     Indication: RHEUMATOID ARTHRITIS
     Dosage: 40 MG, 1 IN 2 WK, SUBCUTANEOUS
     Route: 058
     Dates: start: 20050421
  2. RAMIPRIL [Concomitant]
  3. AZATHIOPRINE [Concomitant]
  4. PANTOPRAZOLE [Concomitant]
  5. ASPIRIN [Concomitant]
  6. DOCUSATE CALCIUM [Concomitant]
  7. HUMABID [Concomitant]
  8. LORAZEPAM [Concomitant]
  9. GABAPENTIN [Concomitant]
  10. LEVOTHYROXINE SODIUM [Concomitant]
  11. IRON [Concomitant]
  12. POTASSIUM CHLORIDE [Concomitant]
  13. ATORVASTATIN CALCIUM [Concomitant]
  14. TORSEMIDE [Concomitant]
  15. ZURALOX [Concomitant]
  16. FLUTICASONE PROPIONATE [Concomitant]
  17. BUTASIDE [Concomitant]
  18. IPRATROPIUM BROMIDE [Concomitant]
  19. ALBUTEROL SULFATE HFA [Concomitant]

REACTIONS (1)
  - INJECTION SITE IRRITATION [None]
